FAERS Safety Report 6933604-2 (Version None)
Quarter: 2010Q3

REPORT INFORMATION
  Report Type: 
  Country: None (occurrence: None)
  Receive Date: 20100820
  Receipt Date: 20100811
  Transmission Date: 20110219
  Serious: Yes (Other)
  Sender: FDA-Public Use
  Company Number: US-JNJFOC-20100801159

PATIENT
  Sex: Male
  Weight: 81 kg

DRUGS (3)
  1. DOXIL [Suspect]
     Indication: BURKITT'S LYMPHOMA
     Route: 042
  2. RITUXIMAB [Suspect]
     Indication: BURKITT'S LYMPHOMA
     Route: 065
  3. RASBURICASE [Concomitant]
     Indication: BLOOD URIC ACID INCREASED
     Route: 065

REACTIONS (2)
  - RENAL FAILURE ACUTE [None]
  - TUMOUR LYSIS SYNDROME [None]
